FAERS Safety Report 19062965 (Version 3)
Quarter: 2021Q3

REPORT INFORMATION
  Report Type: Spontaneous
  Country: US (occurrence: US)
  Receive Date: 20210326
  Receipt Date: 20210706
  Transmission Date: 20211014
  Serious: Yes (Hospitalization, Other)
  Sender: FDA-Public Use
  Company Number: US-SUNOVION-2021SUN001049

PATIENT
  Sex: Male
  Weight: 2.18 kg

DRUGS (4)
  1. WELLBUTRIN [Concomitant]
     Active Substance: BUPROPION HYDROCHLORIDE
     Dosage: UNK
  2. LATUDA [Suspect]
     Active Substance: LURASIDONE HYDROCHLORIDE
     Dosage: 120 MG
     Route: 064
     Dates: start: 2013
  3. LATUDA [Suspect]
     Active Substance: LURASIDONE HYDROCHLORIDE
     Dosage: 80 MG
     Route: 064
  4. PRISTIQ EXTENDED?RELEASE [Suspect]
     Active Substance: DESVENLAFAXINE SUCCINATE
     Dosage: UNK

REACTIONS (18)
  - Fine motor delay [Unknown]
  - Gastrooesophageal reflux disease [Unknown]
  - Speech disorder developmental [Unknown]
  - Gross motor delay [Unknown]
  - Growth disorder [Unknown]
  - Heart rate irregular [Unknown]
  - Foetal growth restriction [Unknown]
  - Jaundice neonatal [Unknown]
  - Infantile colic [Unknown]
  - Premature baby [Unknown]
  - Deafness bilateral [Unknown]
  - Tremor [Recovered/Resolved]
  - Dyspnoea [Unknown]
  - Bradycardia [Recovered/Resolved]
  - Body temperature fluctuation [Unknown]
  - Hypoacusis [Unknown]
  - Foetal exposure during pregnancy [Unknown]
  - Exposure via breast milk [Unknown]
